APPROVED DRUG PRODUCT: ENDURON
Active Ingredient: METHYCLOTHIAZIDE
Strength: 5MG **Federal Register determination that product was not discontinued or withdrawn for safety or effectiveness reasons**
Dosage Form/Route: TABLET;ORAL
Application: N012524 | Product #004
Applicant: ABBVIE INC
Approved: Approved Prior to Jan 1, 1982 | RLD: Yes | RS: No | Type: DISCN